FAERS Safety Report 10977719 (Version 1)
Quarter: 2015Q2

REPORT INFORMATION
  Report Type: Spontaneous
  Country: US (occurrence: None)
  Receive Date: 20150401
  Receipt Date: 20150401
  Transmission Date: 20150821
  Serious: Yes (Disabling)
  Sender: FDA-Public Use
  Company Number: None

PATIENT
  Age: 60 Year
  Sex: Male
  Weight: 79.38 kg

DRUGS (12)
  1. LIPITOR [Concomitant]
     Active Substance: ATORVASTATIN CALCIUM
  2. ENALAPRIL [Concomitant]
     Active Substance: ENALAPRIL
  3. ADVAIR HFA [Concomitant]
     Active Substance: FLUTICASONE PROPIONATE\SALMETEROL XINAFOATE
  4. PREDNISONE. [Concomitant]
     Active Substance: PREDNISONE
  5. CELLCEPT [Concomitant]
     Active Substance: MYCOPHENOLATE MOFETIL\MYCOPHENOLATE MOFETIL HYDROCHLORIDE
  6. GNC MULTIVITAMIN [Concomitant]
  7. OMEGA-3 OIL SUPPLEMENT [Concomitant]
  8. CALCITRIOL. [Concomitant]
     Active Substance: CALCITRIOL
  9. POSTURE-D CALCIUM [Concomitant]
  10. LEVOFLOXACIN. [Suspect]
     Active Substance: LEVOFLOXACIN
     Indication: PNEUMONIA
     Route: 048
     Dates: start: 20141231, end: 20150105
  11. LEVOFLOXACIN. [Suspect]
     Active Substance: LEVOFLOXACIN
     Indication: INFLUENZA
     Route: 048
     Dates: start: 20141231, end: 20150105
  12. CARDIZEM [Concomitant]
     Active Substance: DILTIAZEM HYDROCHLORIDE

REACTIONS (5)
  - Fatigue [None]
  - Psychiatric symptom [None]
  - Tendonitis [None]
  - Asthenia [None]
  - Activities of daily living impaired [None]

NARRATIVE: CASE EVENT DATE: 20141231
